FAERS Safety Report 5091104-1 (Version None)
Quarter: 2006Q3

REPORT INFORMATION
  Report Type: 
  Country: None (occurrence: None)
  Receive Date: 20060829
  Receipt Date: 20060819
  Transmission Date: 20061208
  Serious: Yes (Other)
  Sender: FDA-Public Use
  Company Number: US-BAYER-200613554BCC

PATIENT
  Age: 19 Year
  Sex: Female
  Weight: 51 kg

DRUGS (1)
  1. ALEVE (CAPLET) [Suspect]
     Indication: HEADACHE
     Dosage: TOTAL DAILY DOSE: 1100 MG  UNIT DOSE: 220 MG
     Route: 048
     Dates: start: 20060819

REACTIONS (4)
  - DIZZINESS [None]
  - DYSARTHRIA [None]
  - DYSSTASIA [None]
  - GAIT DISTURBANCE [None]
